FAERS Safety Report 18868058 (Version 1)
Quarter: 2021Q1

REPORT INFORMATION
  Report Type: Spontaneous
  Country: US (occurrence: US)
  Receive Date: 20210209
  Receipt Date: 20210209
  Transmission Date: 20210420
  Serious: No
  Sender: FDA-Public Use
  Company Number: US-BAXTER-2021BAX002520

PATIENT

DRUGS (2)
  1. 5% DEXTROSE INJECTION, USP [Suspect]
     Active Substance: DEXTROSE
     Indication: PRODUCT USED FOR UNKNOWN INDICATION
     Dosage: DEXTROSE 5%?WATER 250 ML BAG 250 ML IN 266 ML
     Route: 065
     Dates: start: 20201220
  2. NOREPINEPHRINE BITARTRATE INJECTION, USP [Suspect]
     Active Substance: NOREPINEPHRINE BITARTRATE
     Indication: PRODUCT USED FOR UNKNOWN INDICATION
     Dosage: 4 MG/4 ML VIAL 16 MG
     Route: 065
     Dates: start: 20201220

REACTIONS (3)
  - Adverse drug reaction [Unknown]
  - Product label confusion [Unknown]
  - Extra dose administered [Unknown]

NARRATIVE: CASE EVENT DATE: 20201220
